FAERS Safety Report 18185689 (Version 1)
Quarter: 2020Q3

REPORT INFORMATION
  Report Type: Spontaneous
  Country: US (occurrence: US)
  Receive Date: 20200821
  Receipt Date: 20200821
  Transmission Date: 20201103
  Serious: No
  Sender: FDA-Public Use
  Company Number: None

PATIENT
  Age: 64 Year
  Sex: Female
  Weight: 67.5 kg

DRUGS (3)
  1. CLENPIQ [Suspect]
     Active Substance: ANHYDROUS CITRIC ACID\MAGNESIUM OXIDE\SODIUM PICOSULFATE
     Indication: COLONOSCOPY
     Dosage: ?          QUANTITY:8 OUNCE(S);?
     Route: 048
     Dates: start: 20200818, end: 20200819
  2. RABEPRAZOLE [Concomitant]
     Active Substance: RABEPRAZOLE
  3. PRAVASTATIN. [Concomitant]
     Active Substance: PRAVASTATIN

REACTIONS (7)
  - Loss of consciousness [None]
  - Delirium [None]
  - Heart rate increased [None]
  - Diarrhoea [None]
  - Paraesthesia [None]
  - Insomnia [None]
  - Head injury [None]

NARRATIVE: CASE EVENT DATE: 20200819
